FAERS Safety Report 13809674 (Version 1)
Quarter: 2017Q3

REPORT INFORMATION
  Report Type: Spontaneous
  Country: DE (occurrence: DE)
  Receive Date: 20170728
  Receipt Date: 20170728
  Transmission Date: 20171127
  Serious: Yes (Hospitalization)
  Sender: FDA-Public Use
  Company Number: DE-ELI_LILLY_AND_COMPANY-DE201707006547

PATIENT
  Age: 54 Year
  Sex: Male
  Weight: 70 kg

DRUGS (4)
  1. ZYPREXA [Suspect]
     Active Substance: OLANZAPINE
     Indication: SCHIZOPHRENIA
     Dosage: 20 MG, DAILY
     Route: 048
     Dates: start: 2008, end: 20170622
  2. DIAZEPAM. [Concomitant]
     Active Substance: DIAZEPAM
     Indication: ANXIETY
     Dosage: 20 MG, DAILY
     Route: 048
     Dates: start: 1989, end: 20170622
  3. FLUPHENAZINE DECANOATE. [Suspect]
     Active Substance: FLUPHENAZINE DECANOATE
     Indication: SCHIZOPHRENIA
     Dosage: 1 ML, DAILY
     Route: 030
     Dates: start: 2005, end: 20170622
  4. CIATYL-Z                           /00876702/ [Suspect]
     Active Substance: ZUCLOPENTHIXOL ACETATE
     Indication: SCHIZOPHRENIA
     Dosage: 200 MG, DAILY
     Route: 048
     Dates: start: 2004, end: 20170622

REACTIONS (18)
  - C-reactive protein increased [Unknown]
  - Blood chloride decreased [Unknown]
  - Blood magnesium decreased [Unknown]
  - Dysstasia [Recovered/Resolved]
  - Aspartate aminotransferase increased [Unknown]
  - Glomerular filtration rate increased [Unknown]
  - Asthenia [Recovered/Resolved]
  - Blood sodium decreased [Recovered/Resolved]
  - Blood lactate dehydrogenase increased [Unknown]
  - Blood creatinine decreased [Unknown]
  - Rhabdomyolysis [Recovered/Resolved]
  - Red blood cell count decreased [Unknown]
  - Blood creatine phosphokinase increased [Recovered/Resolved]
  - Fatigue [Recovered/Resolved]
  - Blood glucose increased [Unknown]
  - Leukocytosis [Recovered/Resolved]
  - Blood urea decreased [Unknown]
  - Neuroleptic malignant syndrome [Recovered/Resolved]

NARRATIVE: CASE EVENT DATE: 20170621
